FAERS Safety Report 6333511-2 (Version None)
Quarter: 2009Q3

REPORT INFORMATION
  Report Type: 
  Country: None (occurrence: None)
  Receive Date: 20090828
  Receipt Date: 20090821
  Transmission Date: 20100115
  Serious: Yes (Other)
  Sender: FDA-Public Use
  Company Number: AR-GENENTECH-289266

PATIENT
  Sex: Female

DRUGS (2)
  1. AVASTIN [Suspect]
     Indication: BREAST CANCER
     Dosage: 10 MG/KG, Q15D
     Route: 042
     Dates: start: 20090523, end: 20090701
  2. PACLITAXEL [Concomitant]
     Indication: DRUG USE FOR UNKNOWN INDICATION
     Dosage: UNK
     Dates: end: 20090701

REACTIONS (4)
  - ASTHENIA [None]
  - BLOOD DISORDER [None]
  - DIARRHOEA [None]
  - PHARYNGEAL INFLAMMATION [None]
